FAERS Safety Report 10629180 (Version 1)
Quarter: 2014Q4

REPORT INFORMATION
  Report Type: Spontaneous
  Country: US (occurrence: US)
  Receive Date: 20141205
  Receipt Date: 20141205
  Transmission Date: 20150529
  Serious: No
  Sender: FDA-Public Use
  Company Number: US-BRISTOL-MYERS SQUIBB COMPANY-21363403

PATIENT
  Age: 73 Year
  Sex: Male
  Weight: 78 kg

DRUGS (1)
  1. BYETTA [Suspect]
     Active Substance: EXENATIDE
     Indication: TYPE 2 DIABETES MELLITUS
     Dosage: INTER ON 03SEP2014?ONGOING
     Route: 058
     Dates: start: 2010

REACTIONS (3)
  - Drug dose omission [Unknown]
  - Weight decreased [Unknown]
  - Visual impairment [Unknown]

NARRATIVE: CASE EVENT DATE: 20140903
